FAERS Safety Report 8394466-2 (Version None)
Quarter: 2012Q2

REPORT INFORMATION
  Report Type: 
  Country: None (occurrence: None)
  Receive Date: 20120530
  Receipt Date: 20090427
  Transmission Date: 20120825
  Serious: Yes (Other)
  Sender: FDA-Public Use
  Company Number: US-PFIZER INC-2009182033

PATIENT

DRUGS (1)
  1. CHANTIX [Suspect]

REACTIONS (2)
  - PSYCHOTIC DISORDER [None]
  - DELUSION [None]
